FAERS Safety Report 23121673 (Version 4)
Quarter: 2024Q1

REPORT INFORMATION
  Report Type: Spontaneous
  Country: DE (occurrence: DE)
  Receive Date: 20231029
  Receipt Date: 20240116
  Transmission Date: 20240410
  Serious: Yes (Life-Threatening, Hospitalization)
  Sender: FDA-Public Use
  Company Number: DE-GILEAD-2023-0634024

PATIENT
  Sex: Female
  Weight: 92 kg

DRUGS (26)
  1. CARBOPLATIN [Suspect]
     Active Substance: CARBOPLATIN
     Indication: Non-small cell lung cancer metastatic
     Dosage: 597.6 MG
     Route: 042
     Dates: start: 20230615, end: 20230615
  2. CARBOPLATIN [Suspect]
     Active Substance: CARBOPLATIN
     Dosage: 478.1 MG
     Route: 042
     Dates: start: 20230717, end: 20230717
  3. PEMETREXED [Suspect]
     Active Substance: PEMETREXED
     Indication: Non-small cell lung cancer metastatic
     Dosage: 995 MG
     Route: 042
     Dates: start: 20230615, end: 20230615
  4. PEMETREXED [Suspect]
     Active Substance: PEMETREXED
     Dosage: 746.3 MG
     Route: 042
     Dates: start: 20230717, end: 20230717
  5. PEMBROLIZUMAB [Suspect]
     Active Substance: PEMBROLIZUMAB
     Indication: Non-small cell lung cancer metastatic
     Dosage: 200 MG
     Route: 042
     Dates: start: 20230615, end: 20230615
  6. PEMBROLIZUMAB [Suspect]
     Active Substance: PEMBROLIZUMAB
     Dosage: 200 MG
     Route: 042
     Dates: start: 20230717
  7. ALLOPURINOL [Concomitant]
     Active Substance: ALLOPURINOL
     Indication: Gout
     Dosage: UNK
     Route: 048
     Dates: start: 2015
  8. FENOTEROL HYDROBROMIDE\IPRATROPIUM BROMIDE [Concomitant]
     Active Substance: FENOTEROL HYDROBROMIDE\IPRATROPIUM BROMIDE
     Indication: Dyspnoea
     Dosage: UNK
     Route: 055
     Dates: start: 20230615
  9. Cimetidin [Concomitant]
     Indication: Premedication
     Dosage: UNK
     Route: 042
     Dates: start: 20230615
  10. DEXAMETHASONE [Concomitant]
     Active Substance: DEXAMETHASONE
     Indication: Premedication
     Dosage: UNK
     Route: 048
     Dates: start: 20230614
  11. DIMETHINDENE [Concomitant]
     Active Substance: DIMETHINDENE
     Indication: Premedication
     Dosage: UNK
     Route: 042
     Dates: start: 20230615
  12. EDOXABAN [Concomitant]
     Active Substance: EDOXABAN
     Indication: Prophylaxis
     Dosage: UNK
     Route: 048
     Dates: start: 2020
  13. FOLATE SODIUM [Concomitant]
     Active Substance: FOLATE SODIUM
     Indication: Supplementation therapy
     Dosage: UNK
     Route: 048
     Dates: start: 20230605
  14. LEVOTHYROXINE [Concomitant]
     Active Substance: LEVOTHYROXINE
     Indication: Hypothyroidism
     Dosage: UNK (2000)
     Route: 048
     Dates: start: 2000
  15. POLYETHYLENE GLYCOLS [Concomitant]
     Active Substance: POLYETHYLENE GLYCOLS
     Indication: Product used for unknown indication
     Dosage: UNK
     Route: 048
     Dates: start: 20230426
  16. METOPROLOL [Concomitant]
     Active Substance: METOPROLOL
     Indication: Atrial fibrillation
     Dosage: UNK
     Route: 048
     Dates: start: 2020
  17. OXYCODONE [Concomitant]
     Active Substance: OXYCODONE
     Indication: Dyspnoea
     Dosage: UNK
     Route: 058
     Dates: start: 20230629, end: 20230706
  18. PALONOSETRON [Concomitant]
     Active Substance: PALONOSETRON
     Indication: Premedication
     Dosage: UNK
     Route: 042
     Dates: start: 20230615
  19. RAMIPRIL [Concomitant]
     Active Substance: RAMIPRIL
     Indication: Hypertension
     Dosage: UNK
     Route: 048
     Dates: start: 2015
  20. RAMIPRIL [Concomitant]
     Active Substance: RAMIPRIL
     Dosage: UNK
     Route: 048
     Dates: start: 2015, end: 20230626
  21. SPIRONOLACTONE [Concomitant]
     Active Substance: SPIRONOLACTONE
     Indication: Hypertension
     Dosage: UNK
     Route: 048
     Dates: start: 2015
  22. SPIRONOLACTONE [Concomitant]
     Active Substance: SPIRONOLACTONE
     Dosage: UNK
     Route: 048
     Dates: start: 2015, end: 20230628
  23. TORSEMIDE [Concomitant]
     Active Substance: TORSEMIDE
     Indication: Left ventricular failure
     Dosage: UNK
     Route: 048
     Dates: start: 2020
  24. TORSEMIDE [Concomitant]
     Active Substance: TORSEMIDE
     Dosage: UNK
     Route: 048
     Dates: start: 2020, end: 20230628
  25. CYANOCOBALAMIN [Concomitant]
     Active Substance: CYANOCOBALAMIN
     Indication: Supplementation therapy
     Dosage: UNK
     Route: 030
     Dates: start: 20230615
  26. ZIEXTENZO [Concomitant]
     Active Substance: PEGFILGRASTIM-BMEZ
     Indication: Prophylaxis
     Dosage: UNK
     Route: 058
     Dates: start: 20230618

REACTIONS (4)
  - Pancytopenia [Recovered/Resolved]
  - Dyspnoea [Recovered/Resolved]
  - Vomiting [Recovered/Resolved]
  - Pancytopenia [Recovered/Resolved]

NARRATIVE: CASE EVENT DATE: 20230618
